FAERS Safety Report 4791751-8 (Version None)
Quarter: 2005Q4

REPORT INFORMATION
  Report Type: 
  Country: None (occurrence: None)
  Receive Date: 20051005
  Receipt Date: 20050922
  Transmission Date: 20060501
  Serious: Yes (Hospitalization)
  Sender: FDA-Public Use
  Company Number: B0334224A

PATIENT
  Age: 47 Year
  Sex: Female

DRUGS (5)
  1. ZOVIRAX [Suspect]
     Dosage: 250 MG/ THREE TIMES PER DAY/INTRA
     Dates: start: 20040516, end: 20040516
  2. ZOVIRAX [Suspect]
     Dosage: ORAL
     Route: 048
     Dates: start: 20040514, end: 20040516
  3. PERITONEAL DIALYSIS [Concomitant]
  4. AZATHIOPRINE [Concomitant]
  5. PREDNISOLONE [Concomitant]

REACTIONS (9)
  - AGITATION [None]
  - BLOOD PRESSURE INCREASED [None]
  - DIALYSIS [None]
  - ENCEPHALITIS [None]
  - HAEMOGLOBIN DECREASED [None]
  - HALLUCINATION, VISUAL [None]
  - NEUROTOXICITY [None]
  - SOMNOLENCE [None]
  - VASCULITIS [None]
